FAERS Safety Report 7457507-2 (Version None)
Quarter: 2011Q1

REPORT INFORMATION
  Report Type: 
  Country: None (occurrence: None)
  Receive Date: 20110302
  Receipt Date: 20100803
  Transmission Date: 20110831
  Serious: Yes (Hospitalization, Other)
  Sender: FDA-Public Use
  Company Number: 163-21880-09120426

PATIENT
  Age: 67 Year
  Sex: Female

DRUGS (14)
  1. ULTRAM [Concomitant]
  2. DARVOCET [Concomitant]
  3. GLUCOSAMINE (GLUCOSAMINE) [Concomitant]
  4. PRILOSEC [Concomitant]
  5. DECADRON [Concomitant]
  6. REVLIMID [Suspect]
     Indication: MULTIPLE MYELOMA
     Dosage: SEE IMAGE PO
     Route: 048
     Dates: start: 20091014, end: 20100421
  7. REVLIMID [Suspect]
     Indication: MULTIPLE MYELOMA
     Dosage: SEE IMAGE PO
     Route: 048
     Dates: start: 20100614
  8. REVLIMID [Suspect]
     Indication: MULTIPLE MYELOMA
     Dosage: SEE IMAGE PO
     Route: 048
     Dates: start: 20090912, end: 20091001
  9. ASPIRIN [Concomitant]
  10. ATIVAN [Concomitant]
  11. MARINOL [Concomitant]
  12. ZOMETA [Concomitant]
  13. VITAMIN D [Concomitant]
  14. FLEXERIL [Concomitant]

REACTIONS (4)
  - APHONIA [None]
  - DYSPHONIA [None]
  - THROMBOSIS [None]
  - DEEP VEIN THROMBOSIS [None]
